FAERS Safety Report 9498891 (Version 1)
Quarter: 2013Q3

REPORT INFORMATION
  Report Type: Spontaneous
  Country: US (occurrence: None)
  Receive Date: 20130830
  Receipt Date: 20130830
  Transmission Date: 20140515
  Serious: Yes (Death)
  Sender: FDA-Public Use
  Company Number: ALK-2013-001913

PATIENT
  Age: 27 Year
  Sex: Male

DRUGS (3)
  1. VIVITROL [Suspect]
     Indication: ALCOHOLISM
     Dosage: QMO
     Route: 030
     Dates: start: 20130417
  2. VIVITROL [Suspect]
     Indication: DRUG DEPENDENCE
     Dosage: QMO
     Route: 030
     Dates: start: 20130417
  3. CLONIDINE (CLONIDINE) [Concomitant]

REACTIONS (1)
  - Death [None]
